FAERS Safety Report 15967828 (Version 2)
Quarter: 2019Q1

REPORT INFORMATION
  Report Type: Spontaneous
  Country: US (occurrence: US)
  Receive Date: 20190215
  Receipt Date: 20190215
  Transmission Date: 20190418
  Serious: No
  Sender: FDA-Public Use
  Company Number: US-TEVA-2019-US-1001132

PATIENT
  Sex: Female

DRUGS (5)
  1. PROPRANOLOL MYLAN [Concomitant]
     Active Substance: PROPRANOLOL HYDROCHLORIDE
     Indication: PANIC ATTACK
     Dates: start: 1990
  2. LORAZEPAM ACTAVIS [Suspect]
     Active Substance: LORAZEPAM
     Indication: ANXIETY
  3. BENEFIBER [Concomitant]
     Active Substance: STARCH, WHEAT
  4. LORAZEPAM ACTAVIS [Suspect]
     Active Substance: LORAZEPAM
     Indication: PANIC ATTACK
     Dosage: SPLIT THE TABLET IN HALF AND TOOK HALF DOSES FIVES HOURS APART
     Dates: start: 20181231
  5. PROPRANOLOL MYLAN [Concomitant]
     Active Substance: PROPRANOLOL HYDROCHLORIDE
     Indication: BLOOD PRESSURE MEASUREMENT

REACTIONS (9)
  - Panic attack [Unknown]
  - Heart rate increased [Unknown]
  - Feeling abnormal [Unknown]
  - Blood pressure increased [Unknown]
  - Product substitution issue [Unknown]
  - Extrasystoles [Unknown]
  - Anxiety [Unknown]
  - Headache [Not Recovered/Not Resolved]
  - Drug ineffective [Unknown]

NARRATIVE: CASE EVENT DATE: 20181231
